FAERS Safety Report 7463031-3 (Version None)
Quarter: 2011Q2

REPORT INFORMATION
  Report Type: 
  Country: None (occurrence: None)
  Receive Date: 20110506
  Receipt Date: 20110324
  Transmission Date: 20111010
  Serious: Yes (Hospitalization, Other)
  Sender: FDA-Public Use
  Company Number: US-BAYER-2010-002548

PATIENT
  Age: 44 Year
  Sex: Female
  Weight: 72.562 kg

DRUGS (22)
  1. CYMBALTA [Concomitant]
     Indication: ANTIDEPRESSANT THERAPY
     Dosage: 60 MG, QD
     Dates: start: 20060408, end: 20060428
  2. PROVIGIL [Concomitant]
     Dosage: 100 MG, UNK
  3. ACETAMINOPHEN [Concomitant]
     Indication: PRODUCT USED FOR UNKNOWN INDICATION
     Dosage: UNK UNK, PRN
  4. ATENOLOL [Concomitant]
     Indication: TREMOR
     Dosage: 25 MG, UNK
     Dates: start: 20060408, end: 20060428
  5. RISPERDAL [Concomitant]
     Indication: PSYCHOTIC DISORDER
     Dosage: 0.5 MG, BID
     Dates: start: 20060414, end: 20060428
  6. SEROQUEL [Concomitant]
     Dosage: 100 MG, UNK
     Route: 048
  7. ALBUTEROL [Concomitant]
     Indication: PRODUCT USED FOR UNKNOWN INDICATION
     Dosage: 2 PUFF(S), TID
     Route: 055
  8. RANITIDINE [Concomitant]
     Dosage: 150 MG, UNK
     Route: 048
  9. PROVIGIL [Concomitant]
     Dosage: 200 MG, UNK
  10. VALIUM [Concomitant]
     Indication: PRODUCT USED FOR UNKNOWN INDICATION
     Dosage: 10 MG, BID
     Dates: start: 20060408, end: 20060428
  11. RISPERDAL [Concomitant]
     Dosage: 0.5 MG, QID
  12. ADVIL LIQUI-GELS [Concomitant]
     Dosage: 400 MG, Q4HR
  13. CYMBALTA [Concomitant]
     Dosage: 90 MG, QD
  14. PROVIGIL [Concomitant]
     Indication: PRODUCT USED FOR UNKNOWN INDICATION
     Dosage: 100 MG, BID
     Dates: start: 20060408, end: 20060428
  15. PROVIGIL [Concomitant]
     Dosage: 100 MG, TID
     Dates: start: 20060408, end: 20060428
  16. TOPAMAX [Concomitant]
     Indication: MOOD SWINGS
     Dosage: 100 MG, QD
     Dates: start: 20060414, end: 20060428
  17. TOPAMAX [Concomitant]
     Dosage: 150 MG, HS
  18. YASMIN [Suspect]
     Indication: PRODUCT USED FOR UNKNOWN INDICATION
     Dosage: UNK UNK, QD
     Route: 048
     Dates: start: 20060121, end: 20061001
  19. TRAMADOL [Concomitant]
     Indication: HEADACHE
     Dosage: 50 MG, PRN
     Dates: start: 20060424, end: 20060428
  20. ADVIL LIQUI-GELS [Concomitant]
     Indication: PRODUCT USED FOR UNKNOWN INDICATION
     Dosage: 400 MG, PRN
  21. LIPITOR [Concomitant]
     Indication: HYPERLIPIDAEMIA
     Dosage: 10 MG, HS
     Route: 048
     Dates: start: 20060408, end: 20060428
  22. VALIUM [Concomitant]
     Dosage: 10 MG, HS

REACTIONS (3)
  - GALLBLADDER DISORDER [None]
  - CHOLELITHIASIS [None]
  - PAIN [None]
